FAERS Safety Report 8487364-7 (Version None)
Quarter: 2012Q2

REPORT INFORMATION
  Report Type: 
  Country: None (occurrence: None)
  Receive Date: 20120628
  Receipt Date: 20120628
  Transmission Date: 20120825
  Serious: Yes (Disabling)
  Sender: FDA-Public Use
  Company Number: None

PATIENT
  Age: 44 Year
  Sex: Female
  Weight: 127.0072 kg

DRUGS (1)
  1. ZYCAM NASAL SPRAY EXTRA STRENGTH [Suspect]
     Indication: NASAL CONGESTION
     Dosage: ONE SPRAY TWICE NASAL
     Route: 045
     Dates: start: 20120201, end: 20120201

REACTIONS (3)
  - PAROSMIA [None]
  - ANOSMIA [None]
  - DYSGEUSIA [None]
